FAERS Safety Report 8300152-7 (Version None)
Quarter: 2012Q2

REPORT INFORMATION
  Report Type: 
  Country: None (occurrence: None)
  Receive Date: 20120417
  Receipt Date: 20120402
  Transmission Date: 20120825
  Serious: Yes (Hospitalization)
  Sender: FDA-Public Use
  Company Number: TPA2012A01974

PATIENT
  Age: 76 Year
  Sex: Male

DRUGS (9)
  1. ADENURIC (FEBUXOSTAT) [Suspect]
     Indication: PRODUCT USED FOR UNKNOWN INDICATION
     Dosage: ORAL
  2. RABEPRAZOLE SODIUM [Concomitant]
  3. HEXAQUINE (THIAMINE HYDROCHLORIDE, QUININE BENZOATE, MELAEUCA VIRIDIFL [Concomitant]
  4. PREVISCAN (FLUINDIONE) [Concomitant]
  5. NAFTILUX (NAFTIDROFURYL OXALATE) [Concomitant]
  6. TAMSULOSIN HYDROCHLORIDE [Suspect]
     Indication: PROPHYLAXIS
     Dosage: ORAL
     Route: 047
     Dates: end: 20111216
  7. IMOVANE (ZOPICLONE) [Concomitant]
  8. ESCITALOPRAM [Concomitant]
  9. INDAPAMIDE [Concomitant]

REACTIONS (5)
  - ORTHOSTATIC HYPOTENSION [None]
  - RENAL FAILURE [None]
  - LOSS OF CONSCIOUSNESS [None]
  - MALAISE [None]
  - PROSTATITIS ESCHERICHIA COLI [None]
